FAERS Safety Report 18417715 (Version 1)
Quarter: 2020Q4

REPORT INFORMATION
  Report Type: Report from Study
  Country: US (occurrence: US)
  Receive Date: 20201022
  Receipt Date: 20201022
  Transmission Date: 20210114
  Serious: Yes (Hospitalization, Other)
  Sender: FDA-Public Use
  Company Number: US-ALXN-A202015427

PATIENT
  Sex: Female

DRUGS (1)
  1. SOLIRIS [Suspect]
     Active Substance: ECULIZUMAB
     Indication: MYASTHENIA GRAVIS
     Dosage: UNK
     Route: 065

REACTIONS (10)
  - Pneumonia [Unknown]
  - Urinary tract infection [Unknown]
  - Myasthenia gravis [Recovering/Resolving]
  - Upper limb fracture [Unknown]
  - Hip fracture [Unknown]
  - Dysphagia [Recovering/Resolving]
  - Fall [Unknown]
  - Speech disorder [Recovering/Resolving]
  - Spinal fracture [Unknown]
  - Cellulitis [Unknown]
